FAERS Safety Report 15009760 (Version 2)
Quarter: 2018Q2

REPORT INFORMATION
  Report Type: Spontaneous
  Country: US (occurrence: US)
  Receive Date: 20180614
  Receipt Date: 20180628
  Transmission Date: 20180711
  Serious: No
  Sender: FDA-Public Use
  Company Number: US-AMGEN-USASP2018078339

PATIENT
  Sex: Female

DRUGS (3)
  1. XELJANZ XR [Concomitant]
     Active Substance: TOFACITINIB CITRATE
     Dosage: 11 MG, QD
     Route: 048
  2. ENBREL [Suspect]
     Active Substance: ETANERCEPT
     Indication: RHEUMATOID ARTHRITIS
     Dosage: 25 MG, QWK
     Route: 058
     Dates: start: 1997, end: 201505
  3. CLARITIN [Concomitant]
     Active Substance: LORATADINE
     Dosage: UNK UNK, QD
     Route: 048
     Dates: start: 2011, end: 201207

REACTIONS (3)
  - Drug effect decreased [Unknown]
  - Inappropriate schedule of drug administration [Unknown]
  - Sinusitis [Unknown]
